FAERS Safety Report 10306734 (Version 4)
Quarter: 2014Q3

REPORT INFORMATION
  Report Type: Spontaneous
  Country: US (occurrence: US)
  Receive Date: 20140715
  Receipt Date: 20140921
  Transmission Date: 20150326
  Serious: No
  Sender: FDA-Public Use
  Company Number: US-009507513-1407USA006112

PATIENT
  Age: 29 Year
  Sex: Female

DRUGS (1)
  1. NEXPLANON [Suspect]
     Active Substance: ETONOGESTREL
     Indication: CONTRACEPTION
     Dosage: 1 DF, UNK
     Route: 059
     Dates: start: 20120611, end: 20140718

REACTIONS (6)
  - Haemorrhage [Unknown]
  - Device difficult to use [Recovered/Resolved]
  - Peripheral swelling [Unknown]
  - Inflammation [Unknown]
  - Medical device complication [Recovered/Resolved]
  - Sedative therapy [Unknown]

NARRATIVE: CASE EVENT DATE: 20140710
